FAERS Safety Report 10264252 (Version 1)
Quarter: 2014Q2

REPORT INFORMATION
  Report Type: Spontaneous
  Country: GB (occurrence: None)
  Receive Date: 20140624
  Receipt Date: 20140624
  Transmission Date: 20141212
  Serious: Yes (Hospitalization)
  Sender: FDA-Public Use
  Company Number: AUR-APL-2014-06526

PATIENT
  Age: 72 Year
  Sex: Female
  Weight: 61 kg

DRUGS (8)
  1. AMLODIPINE [Suspect]
     Indication: ANGINA PECTORIS
     Route: 048
     Dates: start: 20140406, end: 20140601
  2. AMLODIPINE [Suspect]
     Indication: HYPERTENSION
     Route: 048
     Dates: start: 20140406, end: 20140601
  3. TICAGRELOR [Suspect]
     Indication: CORONARY ARTERIAL STENT INSERTION
     Route: 048
     Dates: start: 20140224, end: 20140601
  4. ASPIRIN (ACETYLSALICYLIC ACID) [Concomitant]
  5. ATORVASTATIN (ATORVASTATIN) [Concomitant]
  6. DILTIAZEM (DILTIAZEM) [Concomitant]
  7. OMEPRAZOLE (OMEPRAZOLE) [Concomitant]
  8. RAMIPRIL (RAMIPRIL) [Concomitant]

REACTIONS (5)
  - Cardiac failure [None]
  - Brain natriuretic peptide increased [None]
  - Chest pain [None]
  - Dyspnoea [None]
  - Joint swelling [None]
